FAERS Safety Report 7959013-5 (Version None)
Quarter: 2011Q4

REPORT INFORMATION
  Report Type: 
  Country: None (occurrence: None)
  Receive Date: 20111206
  Receipt Date: 20111124
  Transmission Date: 20120403
  Serious: Yes (Death, Hospitalization, Other)
  Sender: FDA-Public Use
  Company Number: JP-GILEAD-2011-0047289

PATIENT
  Age: 41 Year
  Sex: Male

DRUGS (4)
  1. EMTRICITABINE AND TENOFOVIR DISOPROXIL FUMARATE [Suspect]
     Dosage: 1 UNK, UNK
     Route: 048
     Dates: start: 20090813
  2. KALETRA [Concomitant]
     Indication: HIV INFECTION
     Dosage: 1 DF, UNK
     Route: 048
     Dates: start: 20090619
  3. KALETRA [Concomitant]
     Dosage: 1 DF, UNK
     Route: 048
     Dates: start: 20090813
  4. EMTRICITABINE AND TENOFOVIR DISOPROXIL FUMARATE [Suspect]
     Indication: HIV INFECTION
     Dosage: 1 DF, UNK
     Route: 048
     Dates: start: 20090619

REACTIONS (5)
  - RESPIRATORY FAILURE [None]
  - PYREXIA [None]
  - COUGH [None]
  - DISSEMINATED INTRAVASCULAR COAGULATION [None]
  - IMMUNE RECONSTITUTION SYNDROME [None]
